FAERS Safety Report 17662329 (Version 1)
Quarter: 2020Q2

REPORT INFORMATION
  Report Type: Spontaneous
  Country: US (occurrence: US)
  Receive Date: 20200413
  Receipt Date: 20200413
  Transmission Date: 20200713
  Serious: Yes (Other)
  Sender: FDA-Public Use
  Company Number: US-BECTON DICKINSON-2020BDN00107

PATIENT
  Age: 58 Year
  Sex: Female
  Weight: 99.77 kg

DRUGS (1)
  1. CHLORAPREP WITH TINT [Suspect]
     Active Substance: CHLORHEXIDINE GLUCONATE\ISOPROPYL ALCOHOL
     Indication: INFECTION PROPHYLAXIS
     Dosage: UNK
     Route: 061
     Dates: start: 20200224, end: 20200224

REACTIONS (8)
  - Inflammation [Recovering/Resolving]
  - Chills [Recovering/Resolving]
  - Pyrexia [Recovering/Resolving]
  - Incision site erythema [Recovering/Resolving]
  - Application site irritation [Recovered/Resolved]
  - Application site rash [Recovered/Resolved]
  - Urticaria [Recovering/Resolving]
  - Incision site pruritus [Recovering/Resolving]

NARRATIVE: CASE EVENT DATE: 2020
